FAERS Safety Report 4764455-5 (Version None)
Quarter: 2005Q3

REPORT INFORMATION
  Report Type: 
  Country: None (occurrence: None)
  Receive Date: 20050907
  Receipt Date: 20050829
  Transmission Date: 20060218
  Serious: Yes (Other)
  Sender: FDA-Public Use
  Company Number: 2005121601

PATIENT
  Age: 66 Year
  Sex: Male

DRUGS (2)
  1. AMLODIPINE [Suspect]
     Indication: HYPERTENSION
     Dosage: MANY YEARS
  2. ATACAND [Suspect]
     Indication: HYPERTENSION
     Dosage: MANY YEARS

REACTIONS (2)
  - ANOSMIA [None]
  - NASAL POLYPS [None]
